FAERS Safety Report 8477151-8 (Version None)
Quarter: 2012Q2

REPORT INFORMATION
  Report Type: 
  Country: None (occurrence: None)
  Receive Date: 20120625
  Receipt Date: 20120625
  Transmission Date: 20120825
  Serious: Yes (Hospitalization)
  Sender: FDA-Public Use
  Company Number: None

PATIENT
  Age: 53 Year
  Sex: Female
  Weight: 90.6 kg

DRUGS (1)
  1. CEPHALEXIN [Suspect]
     Indication: INFECTION
     Dosage: 500 MG QID PO
     Route: 048
     Dates: start: 20120517, end: 20120528

REACTIONS (2)
  - DIARRHOEA [None]
  - HAEMATOCHEZIA [None]
